FAERS Safety Report 7206389-2 (Version None)
Quarter: 2011Q1

REPORT INFORMATION
  Report Type: 
  Country: None (occurrence: None)
  Receive Date: 20110103
  Receipt Date: 20110103
  Transmission Date: 20110831
  Serious: Yes (Hospitalization)
  Sender: FDA-Public Use
  Company Number: PHHO2009US11678

PATIENT
  Sex: Female

DRUGS (2)
  1. AFINITOR [Suspect]
     Indication: CARCINOID TUMOUR
     Dosage: 10 MG, QD
     Route: 048
     Dates: start: 20080310
  2. SANDOSTATIN LAR [Suspect]
     Dosage: DOUBLE BLIND
     Route: 048
     Dates: start: 20080310

REACTIONS (5)
  - RECTAL HAEMORRHAGE [None]
  - ANAEMIA [None]
  - ABDOMINAL PAIN [None]
  - COLITIS [None]
  - NAUSEA [None]
